FAERS Safety Report 8558907-X (Version None)
Quarter: 2012Q3

REPORT INFORMATION
  Report Type: 
  Country: None (occurrence: None)
  Receive Date: 20120801
  Receipt Date: 20120730
  Transmission Date: 20120928
  Serious: Yes (Hospitalization, Other)
  Sender: FDA-Public Use
  Company Number: US-AMGEN-USASP2012044302

PATIENT
  Age: 65 Year
  Sex: Male
  Weight: 65.306 kg

DRUGS (15)
  1. HYDROCODONE BITARTRATE AND ACETAMINOPHEN [Concomitant]
     Indication: PAIN
     Dosage: UNK UNK, PRN
  2. CALCITRIOL [Concomitant]
     Dosage: 0.5 MG, QD
     Route: 048
  3. VITAMIN D [Concomitant]
     Route: 048
  4. MEGACE [Concomitant]
     Dosage: 40 MG/ML, BID
     Route: 048
  5. LUPRON [Concomitant]
     Indication: PROSTATE CANCER
     Dosage: UNK
     Route: 030
     Dates: start: 20120116
  6. XGEVA [Suspect]
     Indication: PROPHYLAXIS
     Dosage: 120 MG, ONE TIME DOSE
     Route: 058
     Dates: start: 20120119, end: 20120119
  7. XGEVA [Suspect]
     Indication: METASTASES TO BONE
  8. LORAZEPAM [Concomitant]
     Indication: NAUSEA
     Dosage: 0,5 TO 0.2 MG EVERY SIX HOURS
  9. OXYCONTIN [Concomitant]
     Dosage: 10 MG, BID
  10. XGEVA [Suspect]
     Indication: METASTATIC NEOPLASM
  11. OXYCONTIN [Concomitant]
     Dosage: 20 MG, BID
  12. CALCIUM CARBONATE [Concomitant]
     Dosage: 1 G, TID
     Route: 048
  13. MAGNESIUM OXIDE [Concomitant]
     Dosage: 400 MG, QD
  14. CASODEX [Concomitant]
     Indication: PROSTATE CANCER
     Dosage: 50 MG, UNK
     Route: 048
  15. CHOLECALCIFEROL [Concomitant]
     Dosage: 2000 UNIT, QD
     Route: 048

REACTIONS (17)
  - HYPOMAGNESAEMIA [None]
  - METABOLIC ENCEPHALOPATHY [None]
  - PARAESTHESIA [None]
  - DISTURBANCE IN ATTENTION [None]
  - VISION BLURRED [None]
  - HAEMOGLOBIN DECREASED [None]
  - INSOMNIA [None]
  - HYPOCALCAEMIA [None]
  - PARAESTHESIA ORAL [None]
  - DISORIENTATION [None]
  - URINARY ANASTOMOTIC LEAK [None]
  - HYPOPHOSPHATAEMIA [None]
  - ASTHENIA [None]
  - RENAL FAILURE [None]
  - ELECTROCARDIOGRAM QT PROLONGED [None]
  - HYDRONEPHROSIS [None]
  - OEDEMA PERIPHERAL [None]
